FAERS Safety Report 6633082-7 (Version None)
Quarter: 2010Q1

REPORT INFORMATION
  Report Type: 
  Country: None (occurrence: None)
  Receive Date: 20100312
  Receipt Date: 20100218
  Transmission Date: 20100710
  Serious: Yes (Hospitalization)
  Sender: FDA-Public Use
  Company Number: US-ROCHE-690037

PATIENT
  Age: 52 Year
  Sex: Male

DRUGS (4)
  1. CELLCEPT [Suspect]
     Route: 065
     Dates: start: 20050101
  2. CELLCEPT [Suspect]
     Dosage: LOWERED DOSE
     Route: 065
  3. PROGRAFT [Concomitant]
  4. IMURAN [Concomitant]

REACTIONS (3)
  - ASCITES [None]
  - PORTAL HYPERTENSION [None]
  - VARICES OESOPHAGEAL [None]
